FAERS Safety Report 4330074-8 (Version None)
Quarter: 2004Q1

REPORT INFORMATION
  Report Type: 
  Country: None (occurrence: None)
  Receive Date: 20040329
  Receipt Date: 20040227
  Transmission Date: 20041129
  Serious: No
  Sender: FDA-Public Use
  Company Number: 04P-163-0251927-00

PATIENT
  Age: 40 Year
  Sex: Female

DRUGS (10)
  1. HUMIRA [Suspect]
     Indication: RHEUMATOID ARTHRITIS
     Dosage: 40 MG, 1 IN 2 WK, SUBCUTANEOUS
     Route: 058
     Dates: start: 20031223, end: 20040217
  2. METHOTREXATE [Concomitant]
  3. PREDNISONE [Concomitant]
  4. FOLIC ACID [Concomitant]
  5. MIACALCIN [Concomitant]
  6. CALCIUM WITH D [Concomitant]
  7. PROPACET 100 [Concomitant]
  8. ALPRAZOLAM [Concomitant]
  9. ESOMEPRAZOLE [Concomitant]
  10. LEXAPRO [Concomitant]

REACTIONS (3)
  - BLOOD BLISTER [None]
  - HYPERSENSITIVITY [None]
  - RASH ERYTHEMATOUS [None]
